FAERS Safety Report 6367468 (Version 1)
Quarter: 2020Q3

REPORT INFORMATION
  Report Type: Spontaneous
  Country: DE (occurrence: DE)
  Receive Date: 20070726
  Receipt Date: 20070726
  Transmission Date: 20201104
  Serious: Yes (Death, Disabling, Other)
  Sender: FDA-Public Use
  Company Number: PHNU2007DE02635

PATIENT
  Age: 66 Year

DRUGS (6)
  1. ZOMETA [Suspect]
     Active Substance: ZOLEDRONIC ACID
     Indication: METASTASES TO BONE
     Dosage: 4 MG, UNK
     Route: 042
     Dates: start: 200206
  2. IBANDRONIC ACID. [Suspect]
     Active Substance: IBANDRONIC ACID
     Indication: METASTASES TO BONE
     Dosage: 3 MG, UNK
     Route: 042
     Dates: start: 200101, end: 200205
  3. MCP [Concomitant]
     Active Substance: METOCLOPRAMIDE HYDROCHLORIDE
     Route: 065
  4. NOVALGIN (DIPYRONE) [Concomitant]
     Active Substance: DIPYRONE
     Route: 065
  5. FUROSEMIDE. [Concomitant]
     Active Substance: FUROSEMIDE
     Route: 065
  6. PANTOZOL [Concomitant]
     Active Substance: PANTOPRAZOLE SODIUM
     Route: 065

REACTIONS (9)
  - Oral surgery [Not Recovered/Not Resolved]
  - X-ray dental [Not Recovered/Not Resolved]
  - Tooth extraction [Not Recovered/Not Resolved]
  - Impaired healing [Not Recovered/Not Resolved]
  - Biopsy site unspecified abnormal [Not Recovered/Not Resolved]
  - Death [Fatal]
  - Osteonecrosis [Not Recovered/Not Resolved]
  - Bone sequestrum [Not Recovered/Not Resolved]
  - Bone disorder [Not Recovered/Not Resolved]

NARRATIVE: CASE EVENT DATE: 20030801
